FAERS Safety Report 25292823 (Version 1)
Quarter: 2025Q2

REPORT INFORMATION
  Report Type: Spontaneous
  Country: US (occurrence: US)
  Receive Date: 20250510
  Receipt Date: 20250510
  Transmission Date: 20250717
  Serious: No
  Sender: SANOFI AVENTIS
  Company Number: US-SA-2025SA123335

PATIENT
  Age: 82 Year
  Sex: Female

DRUGS (21)
  1. DUPIXENT [Suspect]
     Active Substance: DUPILUMAB
     Indication: Atrial fibrillation
     Dosage: 300 MG, QOW
     Route: 058
     Dates: start: 2025
  2. CRANBERRY [Concomitant]
     Active Substance: CRANBERRY
  3. IRON [Concomitant]
     Active Substance: IRON
  4. Mct oil [Concomitant]
  5. VITAMINS [Concomitant]
     Active Substance: VITAMINS
  6. FISH OIL\OMEGA-3 FATTY ACIDS [Concomitant]
     Active Substance: FISH OIL\OMEGA-3 FATTY ACIDS
  7. VITAMIN D [Concomitant]
     Active Substance: VITAMIN D NOS
  8. ATORVASTATIN [Concomitant]
     Active Substance: ATORVASTATIN
  9. FAMOTIDINE [Concomitant]
     Active Substance: FAMOTIDINE
  10. FLUOCINONIDE [Concomitant]
     Active Substance: FLUOCINONIDE
  11. FLUOXETINE [Concomitant]
     Active Substance: FLUOXETINE HYDROCHLORIDE
  12. FLUTICASONE [Concomitant]
     Active Substance: FLUTICASONE
  13. FUROSEMIDE [Concomitant]
     Active Substance: FUROSEMIDE
  14. KETOCONAZOLE [Concomitant]
     Active Substance: KETOCONAZOLE
  15. LEVOTHYROXINE [Concomitant]
     Active Substance: LEVOTHYROXINE
  16. POTASSIUM CHLORIDE [Concomitant]
     Active Substance: POTASSIUM CHLORIDE
  17. PREDNISONE [Concomitant]
     Active Substance: PREDNISONE
  18. TACROLIMUS [Concomitant]
     Active Substance: TACROLIMUS
  19. TRELEGY ELLIPTA [Concomitant]
     Active Substance: FLUTICASONE FUROATE\UMECLIDINIUM BROMIDE\VILANTEROL TRIFENATATE
  20. TRIAMCINOLONE [Concomitant]
     Active Substance: TRIAMCINOLONE
  21. XARELTO [Concomitant]
     Active Substance: RIVAROXABAN

REACTIONS (2)
  - Mycotic allergy [Not Recovered/Not Resolved]
  - Product use in unapproved indication [Unknown]
